FAERS Safety Report 9132862 (Version 1)
Quarter: 2013Q1

REPORT INFORMATION
  Report Type: Spontaneous
  Country: US (occurrence: US)
  Receive Date: 20130301
  Receipt Date: 20130301
  Transmission Date: 20140127
  Serious: No
  Sender: FDA-Public Use
  Company Number: US-PFIZER INC-2013071143

PATIENT
  Age: 50 Year
  Sex: Male
  Weight: 92.97 kg

DRUGS (2)
  1. PRISTIQ [Suspect]
     Indication: DEPRESSION
     Dosage: 100 MG, 1X/DAY
     Route: 048
  2. DEPAKOTE ER [Concomitant]
     Dosage: UNK

REACTIONS (1)
  - Sleep apnoea syndrome [Unknown]
